FAERS Safety Report 7339660-4 (Version None)
Quarter: 2011Q1

REPORT INFORMATION
  Report Type: 
  Country: None (occurrence: None)
  Receive Date: 20110308
  Receipt Date: 20110223
  Transmission Date: 20110831
  Serious: Yes (Hospitalization, Other)
  Sender: FDA-Public Use
  Company Number: ES-ELI_LILLY_AND_COMPANY-ES201102006632

PATIENT
  Sex: Female
  Weight: 75 kg

DRUGS (5)
  1. LEVOTHROID [Concomitant]
     Indication: HYPOTHYROIDISM
     Dosage: UNK, DAILY (1/D)
     Route: 048
  2. GLYBURIDE [Concomitant]
     Indication: DIABETES MELLITUS
     Dosage: UNK, 3/D
     Route: 048
  3. FORTEO [Suspect]
     Indication: OSTEOPOROSIS
     Dosage: 20 UG, DAILY (1/D)
     Route: 058
     Dates: start: 20100729
  4. NERVOBION [Concomitant]
     Dosage: UNK, 2/D
     Route: 048
  5. ATARAX [Concomitant]
     Indication: HYPERSENSITIVITY
     Dosage: UNK, 2/D
     Route: 048

REACTIONS (2)
  - FOOT FRACTURE [None]
  - NECROSIS [None]
